FAERS Safety Report 20760500 (Version 2)
Quarter: 2022Q2

REPORT INFORMATION
  Report Type: Spontaneous
  Country: US (occurrence: US)
  Receive Date: 20220428
  Receipt Date: 20220523
  Transmission Date: 20220721
  Serious: No
  Sender: FDA-Public Use
  Company Number: US-UNITED THERAPEUTICS-UNT-2022-009048

PATIENT
  Age: 62 Year
  Sex: Female
  Weight: 52.971 kg

DRUGS (6)
  1. TYVASO [Interacting]
     Active Substance: TREPROSTINIL
     Indication: Pulmonary arterial hypertension
     Dosage: UNK
     Dates: start: 20220209
  2. TYVASO [Interacting]
     Active Substance: TREPROSTINIL
     Dosage: 18-72 ?G, QID
  3. TUSSIONEX PENNKINETIC [Interacting]
     Active Substance: CHLORPHENIRAMINE\HYDROCODONE
     Indication: Cough
     Dosage: UNK
     Route: 065
  4. TUSSIONEX PENNKINETIC [Interacting]
     Active Substance: CHLORPHENIRAMINE\HYDROCODONE
     Indication: Paranasal sinus hypersecretion
  5. CETIRIZINE [Interacting]
     Active Substance: CETIRIZINE HYDROCHLORIDE
     Indication: Cough
     Dosage: UNK
     Route: 065
  6. CETIRIZINE [Interacting]
     Active Substance: CETIRIZINE HYDROCHLORIDE
     Indication: Paranasal sinus hypersecretion

REACTIONS (7)
  - Muscle spasms [Unknown]
  - Paraesthesia [Unknown]
  - Headache [Unknown]
  - Cough [Not Recovered/Not Resolved]
  - Paranasal sinus hypersecretion [Unknown]
  - Nasopharyngitis [Unknown]
  - Drug interaction [Unknown]

NARRATIVE: CASE EVENT DATE: 20220515
